FAERS Safety Report 15443834 (Version 1)
Quarter: 2018Q3

REPORT INFORMATION
  Report Type: Spontaneous
  Country: ES (occurrence: ES)
  Receive Date: 20180928
  Receipt Date: 20180928
  Transmission Date: 20181010
  Serious: Yes (Other)
  Sender: FDA-Public Use
  Company Number: ES-PFIZER INC-2018387701

PATIENT
  Age: 55 Year
  Sex: Female

DRUGS (2)
  1. GENOTONORM [Suspect]
     Active Substance: SOMATROPIN
     Dosage: UNK (REPORTED AS 4.5 UNSPECIFIED UNIT)
     Route: 058
     Dates: start: 20140212
  2. INSULIN [Concomitant]
     Active Substance: INSULIN NOS
     Indication: DIABETES MELLITUS
     Dosage: UNK

REACTIONS (2)
  - Visual impairment [Not Recovered/Not Resolved]
  - Diabetes mellitus [Not Recovered/Not Resolved]
